FAERS Safety Report 5013193-2 (Version None)
Quarter: 2006Q2

REPORT INFORMATION
  Report Type: 
  Country: None (occurrence: None)
  Receive Date: 20060530
  Receipt Date: 20060317
  Transmission Date: 20061013
  Serious: No
  Sender: FDA-Public Use
  Company Number: US-GLAXOSMITHKLINE-A0598023A

PATIENT
  Age: 44 Year
  Sex: Female

DRUGS (1)
  1. WELLBUTRIN XL [Suspect]
     Indication: DEPRESSION
     Dosage: 150MG PER DAY
     Route: 048
     Dates: start: 20060307

REACTIONS (6)
  - ADVERSE EVENT [None]
  - ANOREXIA [None]
  - CONSTIPATION [None]
  - DRY MOUTH [None]
  - NAUSEA [None]
  - POLLAKIURIA [None]
